FAERS Safety Report 8953808 (Version 1)
Quarter: 2012Q4

REPORT INFORMATION
  Report Type: 
  Country: JP (occurrence: JP)
  Receive Date: 20121206
  Receipt Date: 20121206
  Transmission Date: 20130627
  Serious: Yes (Hospitalization)
  Sender: FDA-Public Use
  Company Number: JP-009507513-1201USA02897

PATIENT
  Age: 76 Year
  Sex: Female

DRUGS (2)
  1. BONALON [Suspect]
     Indication: OSTEOPOROSIS
     Dosage: 35 mg, qw
     Route: 048
  2. BENET [Suspect]
     Indication: OSTEOPOROSIS
     Dosage: 2.5 mg, UNK
     Route: 048

REACTIONS (1)
  - Femur fracture [Recovered/Resolved]
